FAERS Safety Report 9550755 (Version 2)
Quarter: 2019Q1

REPORT INFORMATION
  Report Type: Report from Study
  Country: US (occurrence: US)
  Receive Date: 20130924
  Receipt Date: 20190222
  Transmission Date: 20190418
  Serious: No
  Sender: FDA-Public Use
  Company Number: US-SANOFI-AVENTIS-2013SA023130

PATIENT
  Age: 41 Year
  Sex: Male
  Weight: 70.31 kg

DRUGS (5)
  1. TOCOPHEROL [Concomitant]
     Active Substance: TOCOPHEROL
     Indication: MULTIPLE SCLEROSIS
     Dosage: 800 DF,QD
     Dates: start: 200303
  2. VITAMIN B [Concomitant]
     Active Substance: VITAMIN B
     Indication: MULTIPLE SCLEROSIS
     Dosage: 400 IU,QD
     Dates: start: 200303
  3. ASCORBIC ACID. [Concomitant]
     Active Substance: ASCORBIC ACID
     Indication: MULTIPLE SCLEROSIS
     Dosage: 3000 MG,QD
     Dates: start: 200303
  4. TERIFLUNOMIDE. [Suspect]
     Active Substance: TERIFLUNOMIDE
     Indication: MULTIPLE SCLEROSIS
     Dosage: 7 MG, QD
     Route: 048
     Dates: start: 201302, end: 20130630
  5. VITAMINS NOS [Concomitant]
     Active Substance: VITAMINS
     Dosage: UNK UNK,QD

REACTIONS (6)
  - Extra dose administered [Unknown]
  - Drug ineffective [Not Recovered/Not Resolved]
  - Condition aggravated [Not Recovered/Not Resolved]
  - Balance disorder [Not Recovered/Not Resolved]
  - Gait disturbance [Not Recovered/Not Resolved]
  - Fine motor skill dysfunction [Not Recovered/Not Resolved]

NARRATIVE: CASE EVENT DATE: 201303
